FAERS Safety Report 7621159-9 (Version None)
Quarter: 2011Q3

REPORT INFORMATION
  Report Type: 
  Country: None (occurrence: None)
  Receive Date: 20110719
  Receipt Date: 20110713
  Transmission Date: 20111222
  Serious: Yes (Death)
  Sender: FDA-Public Use
  Company Number: PHHY2011US62263

PATIENT
  Sex: Female

DRUGS (5)
  1. CHEMOTHERAPEUTICS [Concomitant]
  2. NEURONTIN [Concomitant]
  3. DECADRON [Concomitant]
  4. ZOMETA [Suspect]
  5. MORPHINE [Concomitant]

REACTIONS (1)
  - BREAST CANCER METASTATIC [None]
